FAERS Safety Report 12476660 (Version 1)
Quarter: 2016Q2

REPORT INFORMATION
  Report Type: Spontaneous
  Country: US (occurrence: US)
  Receive Date: 20160617
  Receipt Date: 20160617
  Transmission Date: 20160815
  Serious: Yes (Other)
  Sender: FDA-Public Use
  Company Number: US-HLSUS-2016-US-000235

PATIENT
  Age: 26 Year
  Sex: Male
  Weight: 79.38 kg

DRUGS (1)
  1. CLOZARIL [Suspect]
     Active Substance: CLOZAPINE
     Indication: SCHIZOPHRENIA
     Dosage: 400 MG ONCE DAILY
     Route: 048
     Dates: start: 19931001

REACTIONS (4)
  - Dyspepsia [Unknown]
  - Fall [Unknown]
  - Off label use [Unknown]
  - Head injury [Unknown]

NARRATIVE: CASE EVENT DATE: 19931001
